FAERS Safety Report 8273360-1 (Version None)
Quarter: 2012Q2

REPORT INFORMATION
  Report Type: 
  Country: None (occurrence: None)
  Receive Date: 20120411
  Receipt Date: 20120331
  Transmission Date: 20120825
  Serious: Yes (Other)
  Sender: FDA-Public Use
  Company Number: PHHY2012DE030023

PATIENT
  Sex: Male
  Weight: 74 kg

DRUGS (7)
  1. BETA BLOCKING AGENTS [Concomitant]
  2. FLUVASTATIN SODIUM [Suspect]
     Indication: HYPERLIPIDAEMIA
     Dosage: 1 DF/DAY
     Route: 048
     Dates: start: 20060821
  3. AMIOHEXAL [Suspect]
     Indication: ATRIAL FIBRILLATION
     Dosage: 1 DF
     Route: 048
     Dates: start: 20070503, end: 20110719
  4. ORAL ANTIDIABETICS [Concomitant]
     Indication: DIABETES MELLITUS
  5. EXFORGE [Suspect]
     Indication: HYPERTENSION
     Dosage: 1 DF/DAY
     Route: 048
     Dates: start: 20080414
  6. ANTICOAGULANTS (ORAL) [Concomitant]
  7. TORSEMIDE [Concomitant]
     Indication: HYPERTENSION
     Dosage: 1 DF/DAY
     Route: 048
     Dates: start: 20080414

REACTIONS (2)
  - BLOOD PRESSURE INCREASED [None]
  - DYSPNOEA [None]
